FAERS Safety Report 9670772 (Version 4)
Quarter: 2014Q1

REPORT INFORMATION
  Report Type: Spontaneous
  Country: US (occurrence: US)
  Receive Date: 20131106
  Receipt Date: 20140130
  Transmission Date: 20141002
  Serious: Yes (Other)
  Sender: FDA-Public Use
  Company Number: US-JNJFOC-20131018943

PATIENT
  Age: 40 Year
  Sex: Male
  Weight: 102.97 kg

DRUGS (8)
  1. REMICADE [Suspect]
     Indication: CROHN^S DISEASE
     Route: 042
     Dates: start: 20130920
  2. REMICADE [Suspect]
     Indication: CROHN^S DISEASE
     Dosage: 100 MG STRENGTH
     Route: 042
     Dates: start: 2001
  3. IMURAN [Suspect]
     Indication: CROHN^S DISEASE
     Dosage: 150 MG (3 TABLETS) 50 MG (CURRENTLY TAPERING OFF TREATMENT)
     Route: 048
     Dates: start: 2001
  4. COLCRYS [Concomitant]
     Indication: VASCULITIS
     Dosage: 15 MG (11/2 TABLET)
     Route: 048
  5. OMEPRAZOLE [Concomitant]
     Indication: GASTROOESOPHAGEAL REFLUX DISEASE
     Dosage: 1 CAPSULE EVERY DAY BEFORE A MEAL
     Route: 048
  6. TRAMADOL [Concomitant]
     Indication: CROHN^S DISEASE
     Dosage: 1 TABLET EVERY 6 HOURS AS NEEDED
     Route: 048
  7. PENTASA [Concomitant]
     Indication: CROHN^S DISEASE
     Dosage: 2 CAPSULES
     Route: 048
  8. MULTIVITAMINS [Concomitant]
     Indication: CROHN^S DISEASE
     Dosage: 9 MG/15ML IRON ORAL LIQUID
     Route: 048

REACTIONS (2)
  - Basal cell carcinoma [Unknown]
  - Neuroendocrine carcinoma of the skin [Not Recovered/Not Resolved]
